FAERS Safety Report 24458407 (Version 2)
Quarter: 2024Q4

REPORT INFORMATION
  Report Type: Spontaneous
  Country: NL (occurrence: NL)
  Receive Date: 20241018
  Receipt Date: 20241024
  Transmission Date: 20250114
  Serious: Yes (Other)
  Sender: CELLTRION
  Company Number: NL-ABBVIE-5714286

PATIENT

DRUGS (8)
  1. INFLIXIMAB [Suspect]
     Active Substance: INFLIXIMAB
     Indication: Crohn^s disease
     Route: 065
  2. INFLIXIMAB [Suspect]
     Active Substance: INFLIXIMAB
     Dosage: UNK
     Route: 065
  3. HUMIRA [Suspect]
     Active Substance: ADALIMUMAB
     Indication: Crohn^s disease
     Route: 058
  4. PREDNISONE ACETATE [Suspect]
     Active Substance: PREDNISONE ACETATE
     Indication: Crohn^s disease
     Route: 065
  5. VEDOLIZUMAB [Suspect]
     Active Substance: VEDOLIZUMAB
     Indication: Crohn^s disease
     Dosage: 300 MG EVERY 4 WEEKS
     Route: 065
  6. VEDOLIZUMAB [Suspect]
     Active Substance: VEDOLIZUMAB
     Dosage: EVERY 8 WEEKS
     Route: 065
  7. BUDESONIDE [Suspect]
     Active Substance: BUDESONIDE
     Indication: Crohn^s disease
     Route: 065
  8. USTEKINUMAB [Suspect]
     Active Substance: USTEKINUMAB
     Indication: Crohn^s disease
     Route: 065

REACTIONS (8)
  - Crohn^s disease [Unknown]
  - Renal failure [Unknown]
  - Colitis [Unknown]
  - Drug level decreased [Unknown]
  - Drug hypersensitivity [Unknown]
  - Therapy non-responder [Not Recovered/Not Resolved]
  - Drug ineffective [Unknown]
  - Drug ineffective [Unknown]
